FAERS Safety Report 19164897 (Version 1)
Quarter: 2021Q2

REPORT INFORMATION
  Report Type: Spontaneous
  Country: CN (occurrence: CN)
  Receive Date: 20210421
  Receipt Date: 20210421
  Transmission Date: 20210717
  Serious: Yes (Other)
  Sender: FDA-Public Use
  Company Number: CN-EISAI MEDICAL RESEARCH-EC-2021-091200

PATIENT
  Age: 58 Year
  Sex: Female
  Weight: 116 kg

DRUGS (4)
  1. TINIDAZOLE. [Suspect]
     Active Substance: TINIDAZOLE
     Indication: ANTI-INFECTIVE THERAPY
     Route: 048
     Dates: start: 20210404, end: 20210406
  2. RABEPRAZOLE [Suspect]
     Active Substance: RABEPRAZOLE
     Indication: HYPERCHLORHYDRIA
     Route: 048
     Dates: start: 20210404, end: 20210406
  3. CLARITHROMYCIN. [Suspect]
     Active Substance: CLARITHROMYCIN
     Indication: ANTI-INFECTIVE THERAPY
     Route: 048
     Dates: start: 20210404, end: 20210406
  4. BISMUTH POTASSIUM CITRATE [Suspect]
     Active Substance: BISMUTH SUBCITRATE
     Indication: HYPERCHLORHYDRIA
     Route: 048
     Dates: start: 20210404, end: 20210406

REACTIONS (3)
  - Urticaria [Recovering/Resolving]
  - Pruritus [Recovering/Resolving]
  - Eye oedema [Recovering/Resolving]

NARRATIVE: CASE EVENT DATE: 20210406
